FAERS Safety Report 8506589-5 (Version None)
Quarter: 2012Q3

REPORT INFORMATION
  Report Type: 
  Country: None (occurrence: None)
  Receive Date: 20120712
  Receipt Date: 20120703
  Transmission Date: 20120928
  Serious: Yes (Death, Other)
  Sender: FDA-Public Use
  Company Number: AR-BRISTOL-MYERS SQUIBB COMPANY-16574352

PATIENT
  Age: 41 Year
  Sex: Male

DRUGS (1)
  1. YERVOY [Suspect]
     Indication: MALIGNANT MELANOMA
     Dates: start: 20120330

REACTIONS (5)
  - DEATH [None]
  - HYPERHIDROSIS [None]
  - HEPATOMEGALY [None]
  - PYREXIA [None]
  - DIARRHOEA [None]
